FAERS Safety Report 5446227-1 (Version None)
Quarter: 2007Q3

REPORT INFORMATION
  Report Type: 
  Country: None (occurrence: None)
  Receive Date: 20070907
  Receipt Date: 20070905
  Transmission Date: 20080115
  Serious: Yes (Death, Other)
  Sender: FDA-Public Use
  Company Number: AU-AVENTIS-200715043GDDC

PATIENT
  Age: 78 Year
  Sex: Female

DRUGS (2)
  1. LANTUS [Suspect]
     Route: 058
     Dates: start: 20061101
  2. AUTOPEN INSULIN INJECTION PEN [Suspect]
     Route: 058

REACTIONS (2)
  - CARDIAC FAILURE [None]
  - RENAL FAILURE [None]
